FAERS Safety Report 13838196 (Version 4)
Quarter: 2017Q3

REPORT INFORMATION
  Report Type: Spontaneous
  Country: SA (occurrence: SA)
  Receive Date: 20170807
  Receipt Date: 20170919
  Transmission Date: 20171127
  Serious: Yes (Death, Life-Threatening, Other)
  Sender: FDA-Public Use
  Company Number: SA-009507513-1708SAU001856

PATIENT
  Sex: Male
  Weight: 3.74 kg

DRUGS (2)
  1. DEXAMETHASONE. [Suspect]
     Active Substance: DEXAMETHASONE
     Indication: METABOLIC DISORDER
     Dosage: ANOTHER COURSE
     Route: 042
  2. DEXAMETHASONE. [Suspect]
     Active Substance: DEXAMETHASONE
     Indication: NEONATAL RESPIRATORY DISTRESS SYNDROME
     Dosage: 0.1 MG/KG, QD
     Route: 042

REACTIONS (2)
  - Drug ineffective [Fatal]
  - Neonatal respiratory failure [Fatal]
